FAERS Safety Report 24540239 (Version 3)
Quarter: 2024Q4

REPORT INFORMATION
  Report Type: Spontaneous
  Country: MX (occurrence: MX)
  Receive Date: 20241023
  Receipt Date: 20241203
  Transmission Date: 20250115
  Serious: No
  Sender: NOVO NORDISK
  Company Number: MX-NOVOPROD-1282706

PATIENT
  Age: 36 Year
  Sex: Female
  Weight: 76 kg

DRUGS (5)
  1. SAXENDA [Suspect]
     Active Substance: LIRAGLUTIDE
     Indication: Weight control
     Dosage: 0.6 MG, QD
     Dates: start: 20240625
  2. SAXENDA [Suspect]
     Active Substance: LIRAGLUTIDE
     Dosage: 1.2 MG, QD
     Dates: start: 20240702
  3. SAXENDA [Suspect]
     Active Substance: LIRAGLUTIDE
     Dosage: 2.4 MG, QD
     Dates: start: 20240716, end: 20240720
  4. SAXENDA [Suspect]
     Active Substance: LIRAGLUTIDE
     Dosage: 1.8 MG, QD
     Dates: start: 20240709
  5. LEVOTHYROXINE [Concomitant]
     Active Substance: LEVOTHYROXINE
     Indication: Hypothyroidism
     Dosage: 100 ?G, QD

REACTIONS (7)
  - Blood pressure decreased [Recovered/Resolved]
  - Food intolerance [Recovered/Resolved]
  - Migraine [Recovered/Resolved]
  - Frequent bowel movements [Unknown]
  - Discomfort [Unknown]
  - Abdominal pain [Recovered/Resolved]
  - Abdominal distension [Recovered/Resolved]

NARRATIVE: CASE EVENT DATE: 20240628
